FAERS Safety Report 5645974-6 (Version None)
Quarter: 2008Q1

REPORT INFORMATION
  Report Type: 
  Country: None (occurrence: None)
  Receive Date: 20080131
  Receipt Date: 20071213
  Transmission Date: 20080703
  Serious: Yes (Other)
  Sender: FDA-Public Use
  Company Number: 163-21880-07120832

PATIENT
  Age: 76 Year
  Sex: Female

DRUGS (1)
  1. REVLIMID [Suspect]
     Indication: MYELODYSPLASTIC SYNDROME
     Dosage: 10 MG, QD X 28 DAYS, ORAL
     Route: 048
     Dates: start: 20071128, end: 20071201

REACTIONS (3)
  - PAIN [None]
  - SWELLING [None]
  - THROMBOPHLEBITIS [None]
